FAERS Safety Report 4514631-1 (Version None)
Quarter: 2004Q4

REPORT INFORMATION
  Report Type: 
  Country: None (occurrence: None)
  Receive Date: 20040927
  Receipt Date: 20040226
  Transmission Date: 20050328
  Serious: No
  Sender: FDA-Public Use
  Company Number: US068145

PATIENT

DRUGS (1)
  1. NEULASTA [Suspect]

REACTIONS (2)
  - DYSPNOEA [None]
  - SWOLLEN TONGUE [None]
